FAERS Safety Report 10194267 (Version 1)
Quarter: 2014Q2

REPORT INFORMATION
  Report Type: Report from Study
  Country: FR (occurrence: FR)
  Receive Date: 20140526
  Receipt Date: 20140526
  Transmission Date: 20141212
  Serious: Yes (Hospitalization)
  Sender: FDA-Public Use
  Company Number: FR-ROCHE-1406387

PATIENT
  Sex: Female

DRUGS (17)
  1. RITUXIMAB [Suspect]
     Indication: RHEUMATOID ARTHRITIS
     Dosage: DAY 1 (D1)
     Route: 065
     Dates: start: 20070921
  2. RITUXIMAB [Suspect]
     Dosage: DAY 15 (D15)
     Route: 065
     Dates: start: 20071008
  3. RITUXIMAB [Suspect]
     Dosage: DAY 1 (D1)
     Route: 065
     Dates: start: 20080721
  4. RITUXIMAB [Suspect]
     Dosage: DAY 15 (D15)
     Route: 065
     Dates: start: 20080804
  5. RITUXIMAB [Suspect]
     Dosage: DAY 1 (D1)
     Route: 065
     Dates: start: 20090327
  6. RITUXIMAB [Suspect]
     Dosage: DAY 15 (D15)
     Route: 065
     Dates: start: 20090409
  7. RITUXIMAB [Suspect]
     Dosage: DAY 1 (D1)
     Route: 065
     Dates: start: 20100519
  8. RITUXIMAB [Suspect]
     Dosage: DAY 15 (D15)
     Route: 065
     Dates: start: 20100602
  9. METHOTREXATE [Concomitant]
     Dosage: 15 MG/W
     Route: 065
  10. METHOTREXATE [Concomitant]
     Dosage: 7.5 MG/W
     Route: 065
  11. METHOTREXATE [Concomitant]
     Dosage: DAY 1: 10 MG/W
     Route: 065
     Dates: start: 20100519
  12. METHOTREXATE [Concomitant]
     Dosage: DAY 15  (D15) :UNSPECIFIED DOSE
     Route: 065
     Dates: start: 20100602
  13. CORTANCYL [Concomitant]
     Dosage: 10 MG/D
     Route: 065
  14. CORTANCYL [Concomitant]
     Dosage: 7 MG/D
     Route: 065
  15. CORTANCYL [Concomitant]
     Dosage: D1:6 MG/D
     Route: 065
     Dates: start: 20090327
  16. CORTANCYL [Concomitant]
     Dosage: D15:  5 MG/D
     Route: 065
     Dates: start: 20090409
  17. CORTANCYL [Concomitant]
     Dosage: DAY 1(D1): 2 MG/D
     Route: 065
     Dates: start: 20100519

REACTIONS (7)
  - Breast neoplasm [Not Recovered/Not Resolved]
  - Gastroenteritis [Not Recovered/Not Resolved]
  - Genital infection female [Not Recovered/Not Resolved]
  - Chest pain [Not Recovered/Not Resolved]
  - Lipids abnormal [Unknown]
  - Asthenia [Not Recovered/Not Resolved]
  - Back pain [Not Recovered/Not Resolved]
